FAERS Safety Report 9121499 (Version 1)
Quarter: 2013Q1

REPORT INFORMATION
  Report Type: Spontaneous
  Country: US (occurrence: US)
  Receive Date: 20130104
  Receipt Date: 20130104
  Transmission Date: 20140127
  Serious: Yes (Other)
  Sender: FDA-Public Use
  Company Number: US-RB-048042-12

PATIENT
  Age: 77 Year
  Sex: Male

DRUGS (3)
  1. MUCINEX FAST-MAX DM MAX [Suspect]
     Indication: NASOPHARYNGITIS
     Dosage: DRUG STOPPED ON 23-DEC-2012.1 DOSE ON 21-DEC-2012 AND 23-DEC-2012 AND 1 OR 2 DOSED ON 22-DEC-2012
     Route: 048
     Dates: start: 20121221
  2. MUCINEX FAST-MAX DM MAX [Suspect]
  3. INSULIN [Concomitant]
     Indication: DIABETES MELLITUS

REACTIONS (1)
  - Blood glucose increased [Unknown]
